FAERS Safety Report 13696999 (Version 1)
Quarter: 2017Q2

REPORT INFORMATION
  Report Type: Spontaneous
  Country: US (occurrence: US)
  Receive Date: 20170627
  Receipt Date: 20170627
  Transmission Date: 20170830
  Serious: Yes (Other)
  Sender: FDA-Public Use
  Company Number: None

PATIENT
  Age: 59 Year
  Sex: Female
  Weight: 63 kg

DRUGS (11)
  1. EQUATE MILK OF MAGNESIA [Suspect]
     Active Substance: MAGNESIUM HYDROXIDE
     Indication: IRRITABLE BOWEL SYNDROME
     Dosage: OTHER STRENGTH:ML;QUANTITY:4 TABLESPOON(S);?
     Route: 048
     Dates: start: 20150101, end: 20170624
  2. PSYLLIUM HUSK [Concomitant]
     Active Substance: PSYLLIUM HUSK
  3. ALPRAZOLAM. [Concomitant]
     Active Substance: ALPRAZOLAM
  4. ACETAMINOPHEN. [Concomitant]
     Active Substance: ACETAMINOPHEN
  5. VITAMIN D3 [Concomitant]
     Active Substance: CHOLECALCIFEROL
  6. METHOCARBAMOL. [Concomitant]
     Active Substance: METHOCARBAMOL
  7. TRETINOIN CREAM (RETIN A) [Concomitant]
  8. SIMILASAN EYE DROPS [Concomitant]
  9. ATENOLOL. [Concomitant]
     Active Substance: ATENOLOL
  10. MELOXICAM. [Concomitant]
     Active Substance: MELOXICAM
  11. MINOCYCLINE [Concomitant]
     Active Substance: MINOCYCLINE\MINOCYCLINE HYDROCHLORIDE

REACTIONS (4)
  - Vomiting [None]
  - Product formulation issue [None]
  - Diarrhoea [None]
  - Liquid product physical issue [None]

NARRATIVE: CASE EVENT DATE: 20170624
